FAERS Safety Report 24079296 (Version 1)
Quarter: 2024Q3

REPORT INFORMATION
  Report Type: Spontaneous
  Country: US (occurrence: None)
  Receive Date: 20240710
  Receipt Date: 20240710
  Transmission Date: 20241017
  Serious: Yes (Death)
  Sender: Public
  Company Number: None

PATIENT
  Age: 102 Year
  Sex: Female

DRUGS (1)
  1. PROLIA [Suspect]
     Active Substance: DENOSUMAB
     Indication: Femoral neck fracture
     Dosage: OTHER FREQUENCY : EVERY6MONTHS ;?

REACTIONS (1)
  - Death [None]

NARRATIVE: CASE EVENT DATE: 20240619
